FAERS Safety Report 8769497 (Version 1)
Quarter: 2012Q4

REPORT INFORMATION
  Report Type: 
  Country: FR (occurrence: FR)
  Receive Date: 20120905
  Receipt Date: 20120905
  Transmission Date: 20130627
  Serious: Yes (Death)
  Sender: FDA-Public Use
  Company Number: FR-SANOFI-AVENTIS-2012SA062639

PATIENT
  Age: 49 Year
  Sex: Male

DRUGS (8)
  1. STILNOX [Suspect]
     Indication: INSOMNIA
     Dosage: Dose:1 unit(s)
     Route: 048
     Dates: start: 2002, end: 201112
  2. STILNOX [Suspect]
     Indication: INSOMNIA
     Dosage: Dose:1 unit(s)
     Route: 048
     Dates: start: 2002, end: 201112
  3. STILNOX [Suspect]
     Indication: INSOMNIA
     Dosage: increased dose of zolpidem: 1 to 2 units daily Dose:1.5 unit(s)
     Route: 048
     Dates: start: 201112, end: 20120313
  4. STILNOX [Suspect]
     Indication: INSOMNIA
     Dosage: increased dose of zolpidem: 1 to 2 units daily Dose:1.5 unit(s)
     Route: 048
     Dates: start: 201112, end: 20120313
  5. STILNOX [Suspect]
     Indication: INSOMNIA
     Dosage: Dose:1.5 unit(s)
     Route: 048
     Dates: start: 20120313
  6. STILNOX [Suspect]
     Indication: INSOMNIA
     Dosage: Dose:1.5 unit(s)
     Route: 048
     Dates: start: 20120313
  7. TERCIAN [Suspect]
     Indication: INSOMNIA
     Route: 065
     Dates: start: 20120313
  8. MIANSERIN [Suspect]
     Indication: DEPRESSION
     Route: 065
     Dates: start: 20120320

REACTIONS (9)
  - Completed suicide [Fatal]
  - Suicidal ideation [Fatal]
  - Pain [Fatal]
  - Cognitive disorder [Fatal]
  - Confusional state [Fatal]
  - Depression [Fatal]
  - Drug dependence [Unknown]
  - Drug abuse [Unknown]
  - Insomnia [Unknown]
